FAERS Safety Report 9044919 (Version 3)
Quarter: 2013Q2

REPORT INFORMATION
  Report Type: Report from Study
  Country: JP (occurrence: JP)
  Receive Date: 20130130
  Receipt Date: 20130618
  Transmission Date: 20140414
  Serious: Yes (Hospitalization)
  Sender: FDA-Public Use
  Company Number: JP-GLAXOSMITHKLINE-B0860765A

PATIENT
  Age: 78 Year
  Sex: Male
  Weight: 53 kg

DRUGS (21)
  1. REVOLADE [Suspect]
     Indication: IDIOPATHIC THROMBOCYTOPENIC PURPURA
     Route: 048
     Dates: start: 20110106, end: 20110720
  2. REVOLADE [Suspect]
     Indication: IDIOPATHIC THROMBOCYTOPENIC PURPURA
     Dosage: 12.5MG ALTERNATE DAYS
     Route: 048
     Dates: start: 20110721, end: 20110831
  3. REVOLADE [Suspect]
     Indication: IDIOPATHIC THROMBOCYTOPENIC PURPURA
     Route: 048
     Dates: start: 20110901, end: 20120605
  4. REVOLADE [Suspect]
     Indication: IDIOPATHIC THROMBOCYTOPENIC PURPURA
     Route: 048
     Dates: start: 20120606, end: 20121204
  5. REVOLADE [Suspect]
     Indication: IDIOPATHIC THROMBOCYTOPENIC PURPURA
     Route: 048
     Dates: start: 20121205
  6. PREDNISOLONE [Concomitant]
     Indication: IDIOPATHIC THROMBOCYTOPENIC PURPURA
     Route: 048
     Dates: end: 20110119
  7. PREDNISOLONE [Concomitant]
     Indication: IDIOPATHIC THROMBOCYTOPENIC PURPURA
     Route: 048
     Dates: start: 20110120, end: 20110413
  8. PREDNISOLONE [Concomitant]
     Indication: IDIOPATHIC THROMBOCYTOPENIC PURPURA
     Route: 048
     Dates: start: 20110414, end: 20110525
  9. PREDNISOLONE [Concomitant]
     Indication: IDIOPATHIC THROMBOCYTOPENIC PURPURA
     Route: 048
     Dates: start: 20110526
  10. BAKTAR [Concomitant]
     Indication: PROPHYLAXIS
     Dosage: 1IUAX ALTERNATE DAYS
     Route: 048
  11. BAKTAR [Concomitant]
     Indication: PROPHYLAXIS
     Dosage: 1IUAX PER DAY
     Route: 048
  12. ALFAROL [Concomitant]
     Indication: PROPHYLAXIS
     Route: 048
  13. GASTER D [Concomitant]
     Indication: PROPHYLAXIS
     Route: 048
  14. GASTER D [Concomitant]
     Indication: PROPHYLAXIS
     Route: 048
  15. HICEE [Concomitant]
     Route: 048
  16. ARTIST [Concomitant]
     Route: 048
     Dates: start: 20111028
  17. FUROSEMIDE [Concomitant]
     Route: 048
     Dates: start: 20111028
  18. NORVASC [Concomitant]
     Route: 048
     Dates: start: 20111025
  19. HARNAL D [Concomitant]
     Route: 048
     Dates: start: 20111026
  20. HANP [Concomitant]
     Route: 042
     Dates: start: 20111212, end: 20111215
  21. WARFARIN [Concomitant]
     Route: 048

REACTIONS (2)
  - Cerebral infarction [Recovering/Resolving]
  - Cardiac failure [Recovering/Resolving]
